FAERS Safety Report 16432445 (Version 1)
Quarter: 2019Q3

REPORT INFORMATION
  Report Type: Spontaneous
  Country: US (occurrence: US)
  Receive Date: 20190614
  Receipt Date: 20190614
  Transmission Date: 20191004
  Serious: Yes (Other)
  Sender: FDA-Public Use
  Company Number: None

PATIENT
  Age: 41 Year
  Sex: Female
  Weight: 67.5 kg

DRUGS (1)
  1. CLENPIQ [Suspect]
     Active Substance: ANHYDROUS CITRIC ACID\MAGNESIUM OXIDE\SODIUM PICOSULFATE
     Indication: COLONOSCOPY
     Dosage: ?          OTHER FREQUENCY:2 DOSES IN TOTAL;?
     Route: 048
     Dates: start: 20190612, end: 20190613

REACTIONS (4)
  - Back pain [None]
  - Gait disturbance [None]
  - Dysstasia [None]
  - Neuralgia [None]

NARRATIVE: CASE EVENT DATE: 20190613
